FAERS Safety Report 10911363 (Version 1)
Quarter: 2015Q1

REPORT INFORMATION
  Report Type: Spontaneous
  Country: GB (occurrence: GB)
  Receive Date: 20150313
  Receipt Date: 20150313
  Transmission Date: 20150721
  Serious: Yes (Other)
  Sender: FDA-Public Use
  Company Number: PHHY2015GB025714

PATIENT
  Age: 67 Year
  Sex: Female
  Weight: 65.31 kg

DRUGS (2)
  1. ACICLOVIR [Concomitant]
     Active Substance: ACYCLOVIR
     Indication: PRODUCT USED FOR UNKNOWN INDICATION
     Route: 065
  2. CO-AMOXICLAV [Suspect]
     Active Substance: AMOXICILLIN\CLAVULANIC ACID
     Indication: LOWER RESPIRATORY TRACT INFECTION
     Dosage: 1 DF, UNK (500/125MG)
     Route: 048
     Dates: start: 20150217, end: 20150221

REACTIONS (4)
  - Pain [Not Recovered/Not Resolved]
  - Skin burning sensation [Not Recovered/Not Resolved]
  - Pruritus [Not Recovered/Not Resolved]
  - Rash papular [Not Recovered/Not Resolved]

NARRATIVE: CASE EVENT DATE: 20150217
